FAERS Safety Report 9288240 (Version 1)
Quarter: 2013Q2

REPORT INFORMATION
  Report Type: Spontaneous
  Country: SE (occurrence: None)
  Receive Date: 20130510
  Receipt Date: 20130510
  Transmission Date: 20140414
  Serious: Yes (Death, Hospitalization, Other)
  Sender: FDA-Public Use
  Company Number: 2013EG0159

PATIENT
  Sex: Male

DRUGS (1)
  1. ORFADIN (NITISINONE) [Suspect]
     Indication: TYROSINAEMIA
     Dates: start: 20110515

REACTIONS (3)
  - Anaphylactic reaction [None]
  - Hepatic cancer [None]
  - Hepatomegaly [None]
